FAERS Safety Report 24064062 (Version 1)
Quarter: 2024Q3

REPORT INFORMATION
  Report Type: Spontaneous
  Country: CN (occurrence: CN)
  Receive Date: 20240709
  Receipt Date: 20240709
  Transmission Date: 20241016
  Serious: Yes (Hospitalization, Other)
  Sender: BAXTER
  Company Number: None

PATIENT
  Age: 2 Year
  Sex: Female
  Weight: 9 kg

DRUGS (15)
  1. CYCLOPHOSPHAMIDE [Suspect]
     Active Substance: CYCLOPHOSPHAMIDE
     Indication: Neoplasm malignant
     Dosage: 415 MG (1000 MG/M2), ONE TIME IN ONE DAY, D1-D2
     Route: 041
     Dates: start: 20240609, end: 20240610
  2. CYCLOPHOSPHAMIDE [Suspect]
     Active Substance: CYCLOPHOSPHAMIDE
     Indication: Neuroblastoma
  3. CYCLOPHOSPHAMIDE [Suspect]
     Active Substance: CYCLOPHOSPHAMIDE
     Indication: Chemotherapy
  4. MESNA [Suspect]
     Active Substance: MESNA
     Indication: Prophylaxis
     Dosage: UNK
     Route: 065
     Dates: start: 20240609
  5. MESNA [Suspect]
     Active Substance: MESNA
     Indication: Cystitis haemorrhagic
  6. PIRARUBICIN HYDROCHLORIDE [Suspect]
     Active Substance: PIRARUBICIN HYDROCHLORIDE
     Indication: Neoplasm malignant
     Dosage: 20.75 MG (50 MG/M2), D1, ONE TIME IN ONE DAY
     Route: 041
     Dates: start: 20240609, end: 20240609
  7. PIRARUBICIN HYDROCHLORIDE [Suspect]
     Active Substance: PIRARUBICIN HYDROCHLORIDE
     Indication: Neuroblastoma
  8. PIRARUBICIN HYDROCHLORIDE [Suspect]
     Active Substance: PIRARUBICIN HYDROCHLORIDE
     Indication: Chemotherapy
  9. VINCRISTINE [Suspect]
     Active Substance: VINCRISTINE
     Indication: Neoplasm malignant
     Dosage: 1.5 MG/M2, D1
     Route: 065
     Dates: start: 20240609, end: 20240609
  10. VINCRISTINE [Suspect]
     Active Substance: VINCRISTINE
     Indication: Neuroblastoma
  11. DEXRAZOXANE [Suspect]
     Active Substance: DEXRAZOXANE
     Indication: Prophylaxis
     Dosage: UNK
     Route: 065
     Dates: start: 20240609
  12. DEXRAZOXANE [Suspect]
     Active Substance: DEXRAZOXANE
     Indication: Cardiotoxicity
  13. GLUTATHIONE [Suspect]
     Active Substance: GLUTATHIONE
     Indication: Prophylaxis
     Dosage: UNK
     Route: 065
     Dates: start: 20240609
  14. ONDANSETRON [Suspect]
     Active Substance: ONDANSETRON
     Indication: Prophylaxis of nausea and vomiting
     Dosage: UNK
     Route: 065
     Dates: start: 20240609
  15. INVESTIGATIONAL PRODUCT [Suspect]
     Active Substance: INVESTIGATIONAL PRODUCT
     Indication: Full blood count decreased
     Dosage: UNK
     Route: 065
     Dates: start: 20240609

REACTIONS (5)
  - Myelosuppression [Recovering/Resolving]
  - White blood cell count decreased [Unknown]
  - Pyrexia [Unknown]
  - Full blood count abnormal [Unknown]
  - Sepsis [Unknown]

NARRATIVE: CASE EVENT DATE: 20240611
